FAERS Safety Report 8591522-0 (Version None)
Quarter: 2012Q3

REPORT INFORMATION
  Report Type: 
  Country: None (occurrence: None)
  Receive Date: 20120801
  Receipt Date: 20120716
  Transmission Date: 20120928
  Serious: Yes (Hospitalization)
  Sender: FDA-Public Use
  Company Number: 2515444201200004

PATIENT
  Age: 50 Year
  Sex: Male

DRUGS (1)
  1. BANANA BOAT SPORT PERFORMANCE, LOTION SPF 30 [Suspect]
     Dosage: TOPICALLY APPLIED
     Dates: start: 20120714

REACTIONS (2)
  - HYPERSENSITIVITY [None]
  - SKIN IRRITATION [None]
